FAERS Safety Report 6633867-7 (Version None)
Quarter: 2010Q1

REPORT INFORMATION
  Report Type: 
  Country: None (occurrence: None)
  Receive Date: 20100315
  Receipt Date: 20090526
  Transmission Date: 20100710
  Serious: Yes (Death, Other)
  Sender: FDA-Public Use
  Company Number: IE-ELI_LILLY_AND_COMPANY-IE200905005179

PATIENT
  Sex: Male
  Weight: 68 kg

DRUGS (6)
  1. ZYPREXA [Suspect]
     Indication: MENTAL DISORDER
     Dosage: 15 MG, UNKNOWN
     Route: 048
     Dates: start: 20070208
  2. SEROQUEL [Concomitant]
     Indication: AFFECTIVE DISORDER
     Dosage: 300 MG, DAILY (1/D)
     Route: 048
     Dates: start: 20070523
  3. EPILIM CHRONO [Concomitant]
     Indication: EPILEPSY
     Dosage: 300
     Route: 048
     Dates: start: 20070525
  4. XANAX [Concomitant]
     Indication: ANXIETY
     Dosage: 1 MG, 2/D
     Route: 065
     Dates: start: 20030826
  5. ZOPLICONE [Concomitant]
     Indication: INSOMNIA
     Dosage: 7.5 MG, UNKNOWN
     Route: 065
     Dates: start: 20050802
  6. TRAMADOL HCL [Concomitant]
     Indication: PAIN
     Dosage: 50 MG, 3/D
     Route: 065
     Dates: start: 20060619

REACTIONS (1)
  - PULMONARY EMBOLISM [None]
